FAERS Safety Report 6271338-0 (Version None)
Quarter: 2009Q3

REPORT INFORMATION
  Report Type: 
  Country: None (occurrence: None)
  Receive Date: 20090717
  Receipt Date: 20090707
  Transmission Date: 20100115
  Serious: Yes (Hospitalization)
  Sender: FDA-Public Use
  Company Number: US-JNJFOC-20090701219

PATIENT
  Sex: Female
  Weight: 100.25 kg

DRUGS (9)
  1. INFLIXIMAB [Suspect]
     Route: 042
  2. INFLIXIMAB [Suspect]
     Indication: PSORIASIS
     Route: 042
  3. LIPITOR [Concomitant]
  4. FLUOXETINE HCL [Concomitant]
  5. FOLIC ACID [Concomitant]
     Route: 048
  6. LORTAB [Concomitant]
     Indication: PAIN
     Dosage: 7/5/500 MG 1-2 TABLETS EVERY 4 HOURS FOR PAIN AS NEEDED
  7. COUMADIN [Concomitant]
  8. AVALIDE [Concomitant]
     Route: 048
  9. METHOTREXATE [Concomitant]

REACTIONS (1)
  - ARTHRITIS [None]
